FAERS Safety Report 16575542 (Version 1)
Quarter: 2019Q3

REPORT INFORMATION
  Report Type: Report from Study
  Country: US (occurrence: US)
  Receive Date: 20190716
  Receipt Date: 20190716
  Transmission Date: 20191004
  Serious: Yes (Other)
  Sender: FDA-Public Use
  Company Number: US-TEVA-2019-US-1076134

PATIENT
  Sex: Female

DRUGS (3)
  1. AUSTEDO [Suspect]
     Active Substance: DEUTETRABENAZINE
     Indication: TARDIVE DYSKINESIA
     Dosage: STARTED TREATMENT
     Dates: start: 20180902
  2. AUSTEDO [Suspect]
     Active Substance: DEUTETRABENAZINE
     Dosage: 24 MILLIGRAM DAILY;
     Route: 048
  3. AUSTEDO [Suspect]
     Active Substance: DEUTETRABENAZINE
     Dosage: 21 MILLIGRAM DAILY; IS CURRENTLY TAKING 12 MG IN THE AM AND 9 MG IN THE PM AS A MAINTENANCE DOSE
     Route: 048

REACTIONS (3)
  - Suicidal ideation [Recovered/Resolved]
  - Mood altered [Unknown]
  - Osteoporosis [Unknown]

NARRATIVE: CASE EVENT DATE: 2019
